FAERS Safety Report 12293279 (Version 4)
Quarter: 2016Q2

REPORT INFORMATION
  Report Type: Report from Study
  Country: US (occurrence: US)
  Receive Date: 20160421
  Receipt Date: 20160518
  Transmission Date: 20160815
  Serious: Yes (Death, Hospitalization, Disabling)
  Sender: FDA-Public Use
  Company Number: US-AMGEN-USACT2016041293

PATIENT
  Age: 75 Year
  Sex: Male
  Weight: 103.18 kg

DRUGS (2)
  1. AMG 145 [Suspect]
     Active Substance: EVOLOCUMAB
     Indication: DYSLIPIDAEMIA
     Dosage: 420 MG, Q4WK
     Route: 058
     Dates: start: 20150428, end: 20160112
  2. PREFILLED AUTOINJECTOR/PEN [Suspect]
     Active Substance: DEVICE
     Indication: DYSLIPIDAEMIA
     Dosage: UNK
     Route: 058
     Dates: start: 20150428, end: 20160112

REACTIONS (2)
  - Dysphagia [Recovered/Resolved]
  - Metabolic encephalopathy [Fatal]

NARRATIVE: CASE EVENT DATE: 20160313
